FAERS Safety Report 18546933 (Version 2)
Quarter: 2020Q4

REPORT INFORMATION
  Report Type: Report from Study
  Country: US (occurrence: US)
  Receive Date: 20201125
  Receipt Date: 20201229
  Transmission Date: 20210114
  Serious: Yes (Other)
  Sender: FDA-Public Use
  Company Number: US-MYLANLABS-2020M1097390

PATIENT
  Age: 57 Year
  Sex: Female
  Weight: 70.3 kg

DRUGS (9)
  1. METFORMIN [Concomitant]
     Active Substance: METFORMIN HYDROCHLORIDE
     Dosage: UNK
     Dates: start: 20180201
  2. RISPERIDONE. [Concomitant]
     Active Substance: RISPERIDONE
     Dosage: UNK
  3. VITAMIN D2 [Concomitant]
     Active Substance: ERGOCALCIFEROL
     Dosage: UNK
     Dates: start: 20191211
  4. CLOZAPINE. [Suspect]
     Active Substance: CLOZAPINE
     Indication: AFFECTIVE DISORDER
  5. CLOZAPINE. [Suspect]
     Active Substance: CLOZAPINE
     Indication: HALLUCINATION
     Dosage: UNK
     Dates: start: 20171228
  6. CLOZAPINE. [Suspect]
     Active Substance: CLOZAPINE
     Indication: SCHIZOAFFECTIVE DISORDER BIPOLAR TYPE
     Dosage: 400 MILLIGRAM, PM (BEDTIME)
     Dates: start: 20141009
  7. CLOZAPINE. [Suspect]
     Active Substance: CLOZAPINE
     Indication: DELUSION
  8. LITHIUM CARBONATE. [Concomitant]
     Active Substance: LITHIUM CARBONATE
     Dosage: UNK
     Dates: start: 20201118
  9. POLYETHYLENE GLYCOL [Concomitant]
     Active Substance: POLYETHYLENE GLYCOLS
     Dosage: UNK
     Dates: start: 20180402

REACTIONS (1)
  - Neutropenia [Recovered/Resolved]

NARRATIVE: CASE EVENT DATE: 20201117
